FAERS Safety Report 4951328-8 (Version None)
Quarter: 2006Q1

REPORT INFORMATION
  Report Type: 
  Country: None (occurrence: None)
  Receive Date: 20060317
  Receipt Date: 20060307
  Transmission Date: 20060701
  Serious: Yes (Death)
  Sender: FDA-Public Use
  Company Number: US200602005668

PATIENT
  Age: 68 Year
  Sex: Female
  Weight: 123.4 kg

DRUGS (1)
  1. ZYPREXA [Suspect]
     Dosage: 7.5 MG, EACH EVENING

REACTIONS (12)
  - ANHEDONIA [None]
  - CARDIAC FAILURE CONGESTIVE [None]
  - CELLULITIS [None]
  - DEMENTIA [None]
  - DIABETES MELLITUS [None]
  - EMOTIONAL DISTRESS [None]
  - HEADACHE [None]
  - MIGRAINE [None]
  - MYOCARDIAL INFARCTION [None]
  - RENAL FAILURE CHRONIC [None]
  - ROAD TRAFFIC ACCIDENT [None]
  - SCHIZOPHRENIA [None]
